FAERS Safety Report 21707888 (Version 2)
Quarter: 2022Q4

REPORT INFORMATION
  Report Type: Spontaneous
  Country: US (occurrence: US)
  Receive Date: 20221209
  Receipt Date: 20221227
  Transmission Date: 20230112
  Serious: Yes (Life-Threatening, Hospitalization, Other)
  Sender: FDA-Public Use
  Company Number: US-BRISTOL-MYERS SQUIBB COMPANY-2022-149676

PATIENT
  Age: 49 Year

DRUGS (2)
  1. CAMZYOS [Suspect]
     Active Substance: MAVACAMTEN
     Indication: Hypertensive cardiomyopathy
     Route: 048
     Dates: start: 20221004
  2. METOPROLOL [Concomitant]
     Active Substance: METOPROLOL
     Indication: Blood pressure measurement

REACTIONS (2)
  - Blood pressure systolic increased [Recovering/Resolving]
  - Haemorrhage intracranial [Unknown]

NARRATIVE: CASE EVENT DATE: 20221203
